FAERS Safety Report 25082535 (Version 1)
Quarter: 2025Q1

REPORT INFORMATION
  Report Type: Spontaneous
  Country: AR (occurrence: AR)
  Receive Date: 20250317
  Receipt Date: 20250317
  Transmission Date: 20250409
  Serious: Yes (Death, Other)
  Sender: GENMAB
  Company Number: AR-ABBVIE-6173487

PATIENT
  Sex: Male

DRUGS (2)
  1. EPKINLY [Suspect]
     Active Substance: EPCORITAMAB-BYSP
     Indication: Diffuse large B-cell lymphoma
     Route: 058
  2. TOCILIZUMAB [Concomitant]
     Active Substance: TOCILIZUMAB
     Indication: Cytokine release syndrome
     Route: 065

REACTIONS (13)
  - Death [Fatal]
  - Ventricular tachycardia [Unknown]
  - Procalcitonin increased [Unknown]
  - Ventricular arrhythmia [Unknown]
  - Pneumonia bacterial [Recovered/Resolved]
  - Hypoalbuminaemia [Unknown]
  - Hypothyroidism [Unknown]
  - Hypoxia [Unknown]
  - Hypotension [Unknown]
  - Sensory disturbance [Unknown]
  - Cardiac failure [Unknown]
  - Hyponatraemia [Unknown]
  - Cytokine release syndrome [Unknown]

NARRATIVE: CASE EVENT DATE: 20250101
